FAERS Safety Report 25101723 (Version 1)
Quarter: 2025Q1

REPORT INFORMATION
  Report Type: Spontaneous
  Country: CA (occurrence: CA)
  Receive Date: 20250320
  Receipt Date: 20250320
  Transmission Date: 20250409
  Serious: Yes (Hospitalization, Disabling, Other)
  Sender: AMGEN
  Company Number: CA-002147023-NVSC2025CA045237

PATIENT
  Age: 59 Year
  Sex: Female

DRUGS (1)
  1. AIMOVIG [Suspect]
     Active Substance: ERENUMAB-AOOE
     Indication: Migraine
     Dosage: 70.0 ML, QMO
     Route: 030

REACTIONS (2)
  - Retinal tear [Recovered/Resolved with Sequelae]
  - Tooth resorption [Recovered/Resolved with Sequelae]
